FAERS Safety Report 8310711-3 (Version None)
Quarter: 2012Q2

REPORT INFORMATION
  Report Type: 
  Country: None (occurrence: None)
  Receive Date: 20120425
  Receipt Date: 20120419
  Transmission Date: 20120825
  Serious: Yes (Death)
  Sender: FDA-Public Use
  Company Number: US-CELGENEUS-163-20785-12042152

PATIENT
  Sex: Male

DRUGS (2)
  1. THALOMID [Suspect]
     Indication: COLON CANCER
     Dosage: 50 MILLIGRAM
     Route: 048
     Dates: start: 20120228
  2. TEMODAR [Concomitant]
     Route: 065
     Dates: start: 20120320

REACTIONS (1)
  - COLON CANCER METASTATIC [None]
